FAERS Safety Report 4647756-0 (Version None)
Quarter: 2005Q2

REPORT INFORMATION
  Report Type: 
  Country: None (occurrence: None)
  Receive Date: 20050427
  Receipt Date: 20050427
  Transmission Date: 20051028
  Serious: Yes (Hospitalization)
  Sender: FDA-Public Use
  Company Number: None

PATIENT
  Sex: Male
  Weight: 67.2 kg

DRUGS (2)
  1. CISPLATIN [Suspect]
     Dosage: 100MG/M2 ON DAYS 1,22,43
     Dates: start: 20050404, end: 20050404
  2. RADIATION THERAPY FRACTIONATION [Suspect]
     Dosage: 24 GY EXTERNAL BEAM 2D
     Dates: end: 20050419

REACTIONS (2)
  - NEUTROPENIA [None]
  - PYREXIA [None]
